FAERS Safety Report 5629576-3 (Version None)
Quarter: 2008Q1

REPORT INFORMATION
  Report Type: 
  Country: None (occurrence: None)
  Receive Date: 20080218
  Receipt Date: 20080207
  Transmission Date: 20080703
  Serious: Yes (Other)
  Sender: FDA-Public Use
  Company Number: SE-ASTRAZENECA-2008SE00756

PATIENT
  Age: 4 Year
  Sex: Female

DRUGS (9)
  1. MERONEM [Suspect]
     Indication: SKIN INFECTION
     Route: 042
     Dates: start: 20071123, end: 20071128
  2. ABSENOR [Interacting]
     Indication: EPILEPSY
     Route: 048
  3. LOSEC MUPS [Concomitant]
     Route: 048
  4. MOVICOL JUNIOR [Concomitant]
     Route: 048
  5. ACETYLCYSTEIN ALTERNOVA [Concomitant]
     Route: 048
  6. ALVEDON [Concomitant]
     Route: 048
  7. FRISIUM [Concomitant]
  8. CALCIUM-SANDOZ [Concomitant]
     Route: 048
  9. CLONIDINE HCL [Concomitant]

REACTIONS (2)
  - DRUG INTERACTION [None]
  - DRUG THERAPEUTIC INCOMPATIBILITY [None]
